FAERS Safety Report 11987510 (Version 1)
Quarter: 2016Q1

REPORT INFORMATION
  Report Type: Spontaneous
  Country: US (occurrence: None)
  Receive Date: 20160201
  Receipt Date: 20160201
  Transmission Date: 20160526
  Serious: Yes (Other)
  Sender: FDA-Public Use
  Company Number: None

PATIENT
  Age: 50 Year
  Sex: Female
  Weight: 70.31 kg

DRUGS (7)
  1. FISH OIL [Concomitant]
     Active Substance: FISH OIL
  2. DAILY MULTI-VITAMIN [Concomitant]
     Active Substance: VITAMINS
  3. PREMPRO [Concomitant]
     Active Substance: ESTROGENS, CONJUGATED\MEDROXYPROGESTERONE ACETATE
  4. FLAXSEED [Concomitant]
     Active Substance: FLAX SEED
  5. LAMICTAL [Concomitant]
     Active Substance: LAMOTRIGINE
  6. CIPRO [Suspect]
     Active Substance: CIPROFLOXACIN HYDROCHLORIDE
     Indication: CYSTOSCOPY
     Dosage: 1 PILL 1 TIME TAKEN BY MOUTH
     Route: 048
     Dates: start: 20160122, end: 20160122
  7. OMEPRAZOLE. [Concomitant]
     Active Substance: OMEPRAZOLE

REACTIONS (10)
  - Tendon pain [None]
  - Dizziness [None]
  - Eye pain [None]
  - Paraesthesia [None]
  - Malaise [None]
  - Myalgia [None]
  - Blood pressure decreased [None]
  - Headache [None]
  - Hypoaesthesia [None]
  - Arthralgia [None]

NARRATIVE: CASE EVENT DATE: 20160122
